FAERS Safety Report 22761637 (Version 4)
Quarter: 2024Q4

REPORT INFORMATION
  Report Type: Spontaneous
  Country: US (occurrence: US)
  Receive Date: 20230728
  Receipt Date: 20241202
  Transmission Date: 20250114
  Serious: No
  Sender: PFIZER
  Company Number: US-PFIZER INC-PV202300106404

PATIENT
  Age: 70 Year
  Sex: Female
  Weight: 73.3 kg

DRUGS (3)
  1. IBRANCE [Suspect]
     Active Substance: PALBOCICLIB
     Indication: Breast cancer metastatic
     Dosage: 250 MG, CYCLIC (DAILY FOR 21 DAYS AND 7 DAYS OFF EVERY 28 DAYS)
     Route: 048
  2. IBRANCE [Suspect]
     Active Substance: PALBOCICLIB
     Indication: Breast cancer female
     Dosage: 125 MG, CYCLIC (DAILY FOR 21 DAYS AND 7 DAYS OFF EVERY 28 DAYS)
     Route: 048
  3. IBRANCE [Suspect]
     Active Substance: PALBOCICLIB
     Dosage: 100 MG, CYCLIC, TAKE 1 TABLET BY MOUTH DAILY. 3 WEEKS ON, FOLLOWED BY 1 WEEK OFF
     Route: 048

REACTIONS (2)
  - Full blood count decreased [Unknown]
  - Off label use [Unknown]
